FAERS Safety Report 7394096-5 (Version None)
Quarter: 2011Q2

REPORT INFORMATION
  Report Type: 
  Country: None (occurrence: None)
  Receive Date: 20110405
  Receipt Date: 20110330
  Transmission Date: 20111010
  Serious: Yes (Death, Hospitalization, Other)
  Sender: FDA-Public Use
  Company Number: US-ALEXION-A201100398

PATIENT
  Sex: Male

DRUGS (27)
  1. NIFEDIPINE [Concomitant]
     Dosage: 90 MG, QD
  2. TAMIFLU [Concomitant]
     Dosage: 75 MG, QD
     Route: 048
  3. SOLIRIS [Suspect]
     Indication: PAROXYSMAL NOCTURNAL HAEMOGLOBINURIA
     Dosage: 900 MG, Q2W
     Route: 042
     Dates: end: 20090529
  4. POTASSIUM [Concomitant]
  5. PROMETHAZINE HYDROCHLORIDE [Concomitant]
     Indication: NAUSEA
     Dosage: 25 MG, Q4-6H PRN
     Route: 048
  6. LORAZEPAM [Concomitant]
     Dosage: 1 MG, Q6-8H PRN
  7. PROGRAF [Concomitant]
  8. LANTUS [Concomitant]
     Dosage: 15 UNITS QHS PRN
     Route: 058
  9. NEBUPENT [Concomitant]
     Dosage: 300 MG, Q2W
     Route: 055
  10. DILAUDID [Concomitant]
  11. ENTERIC CORT [Concomitant]
  12. LEVAQUIN [Concomitant]
  13. HYDRALAZINE [Concomitant]
     Indication: BLOOD PRESSURE
     Dosage: 100 MG, Q8H
     Route: 048
  14. FOLATE [Concomitant]
     Dosage: 1 MG, QD
     Route: 048
  15. HUMULIN R [Concomitant]
  16. MG PLUS PROTEIN [Concomitant]
     Dosage: 133 MG, 2 TABLETS TID
     Route: 048
  17. IMODIUM MULTI-SYMPTOM RELIEF [Concomitant]
     Indication: DIARRHOEA
     Dosage: 2 TABLETS Q4H PRN
     Route: 048
  18. PREDNISONE [Concomitant]
  19. NEXIUM [Concomitant]
     Dosage: 40 MG, BID
     Route: 048
  20. HYDROCHLOROTHIAZIDE [Concomitant]
     Dosage: 25 MG, QD
     Route: 048
  21. ANALGESICS [Concomitant]
     Indication: PAIN
  22. EPOGEN [Concomitant]
     Indication: HAEMOGLOBIN DECREASED
     Dosage: 40000 UT, QW
     Route: 058
     Dates: start: 20091028
  23. CELLCEPT [Concomitant]
  24. LOPRESSOR [Concomitant]
     Indication: BLOOD PRESSURE
     Dosage: 50 MG, BID
     Route: 048
  25. CELEXA [Concomitant]
     Indication: DEPRESSION
     Dosage: 40 MG, QD
     Route: 048
  26. XANAX [Concomitant]
     Indication: ANXIETY
     Dosage: 0.5 MG, TID
     Route: 048
  27. ACYCLOVIR [Concomitant]
     Dosage: 400 MG, UNK
     Route: 048

REACTIONS (13)
  - ABDOMINAL PAIN [None]
  - PNEUMONIA BACTERIAL [None]
  - RENAL FAILURE [None]
  - BACTERAEMIA [None]
  - DEATH [None]
  - VOMITING [None]
  - NAUSEA [None]
  - PANCREATITIS [None]
  - CHOLECYSTITIS [None]
  - LIVER INJURY [None]
  - GRAFT VERSUS HOST DISEASE [None]
  - DYSPNOEA [None]
  - BURKHOLDERIA CEPACIA COMPLEX INFECTION [None]
